FAERS Safety Report 20518011 (Version 1)
Quarter: 2022Q1

REPORT INFORMATION
  Report Type: Spontaneous
  Country: US (occurrence: None)
  Receive Date: 20220224
  Receipt Date: 20220224
  Transmission Date: 20220423
  Serious: Yes (Hospitalization)
  Sender: FDA-Public Use
  Company Number: None

PATIENT
  Age: 74 Year
  Sex: Male
  Weight: 91.63 kg

DRUGS (1)
  1. AMILORIDE HYDROCHLORIDE [Suspect]
     Active Substance: AMILORIDE HYDROCHLORIDE
     Indication: Hypertension
     Dosage: 1 TAB EVERY DAY PO?
     Route: 048
     Dates: start: 20161214, end: 20201231

REACTIONS (3)
  - Acute kidney injury [None]
  - Hyperkalaemia [None]
  - Blood urea increased [None]

NARRATIVE: CASE EVENT DATE: 20201230
